FAERS Safety Report 11723066 (Version 3)
Quarter: 2016Q1

REPORT INFORMATION
  Report Type: Spontaneous
  Country: FR (occurrence: FR)
  Receive Date: 20151111
  Receipt Date: 20160207
  Transmission Date: 20160525
  Serious: Yes (Death, Hospitalization)
  Sender: FDA-Public Use
  Company Number: FR-TEVA-608018ISR

PATIENT
  Age: 80 Year
  Sex: Female
  Weight: 60 kg

DRUGS (10)
  1. MELPHALAN [Interacting]
     Active Substance: MELPHALAN
     Indication: CHEMOTHERAPY
     Dosage: 9 MG/M? (16 MG) FROM DAY 1 TO 4
     Dates: start: 20140401
  2. ATORVASTATIN [Concomitant]
     Active Substance: ATORVASTATIN
     Indication: HYPERCHOLESTEROLAEMIA
  3. PREDNISONE. [Concomitant]
     Active Substance: PREDNISONE
  4. COTRIMOXAZOLE [Suspect]
     Active Substance: SULFAMETHOXAZOLE\TRIMETHOPRIM
     Indication: PROPHYLAXIS
     Dosage: SULFAMETHOXAZOLE 800 MG, TRIMETHOPRIM 160 MG
  5. BORTEZOMIB [Interacting]
     Active Substance: BORTEZOMIB
     Indication: CHEMOTHERAPY
     Dosage: 1.3 MG/M? (DAY 1, 4, 8, 11, 22, 25, 29, 32)
     Route: 058
     Dates: start: 20140401
  6. CALCIUM FOLINATE [Concomitant]
     Active Substance: LEUCOVORIN CALCIUM
     Indication: PROPHYLAXIS
  7. SOTALOL. [Concomitant]
     Active Substance: SOTALOL
     Indication: HYPERTENSION
  8. CANDESARTAN [Concomitant]
     Active Substance: CANDESARTAN
     Indication: HYPERTENSION
  9. VALACICLOVIR [Concomitant]
     Active Substance: VALACYCLOVIR HYDROCHLORIDE
     Indication: PROPHYLAXIS
  10. OMEPRAZOLE. [Concomitant]
     Active Substance: OMEPRAZOLE
     Indication: PROPHYLAXIS

REACTIONS (6)
  - Drug interaction [Recovered/Resolved]
  - Septic shock [Fatal]
  - Pancytopenia [Recovered/Resolved]
  - Sepsis [Recovered/Resolved]
  - Confusional state [Unknown]
  - Acute kidney injury [Recovered/Resolved]

NARRATIVE: CASE EVENT DATE: 20140412
